FAERS Safety Report 23442071 (Version 1)
Quarter: 2024Q1

REPORT INFORMATION
  Report Type: Spontaneous
  Country: US (occurrence: US)
  Receive Date: 20240125
  Receipt Date: 20240125
  Transmission Date: 20240410
  Serious: Yes (Hospitalization)
  Sender: FDA-Public Use
  Company Number: US-KARYOPHARM-2024KPT000073

PATIENT

DRUGS (17)
  1. XPOVIO [Suspect]
     Active Substance: SELINEXOR
     Indication: Plasma cell myeloma
     Dosage: 60 MG, WEEKLY
     Route: 048
     Dates: start: 20231110
  2. ZOMETA [Concomitant]
     Active Substance: ZOLEDRONIC ACID
  3. DARZALEX [Concomitant]
     Active Substance: DARATUMUMAB
  4. DEXAMETHASONE [Concomitant]
     Active Substance: DEXAMETHASONE
  5. FINASTERIDE [Concomitant]
     Active Substance: FINASTERIDE
  6. AMLODIPINE [Concomitant]
     Active Substance: AMLODIPINE BESYLATE
  7. ZOFRAN [Concomitant]
     Active Substance: ONDANSETRON HYDROCHLORIDE
  8. HYDROCHLOROTHIAZIDE [Concomitant]
     Active Substance: HYDROCHLOROTHIAZIDE
  9. TAMSULOSIN [Concomitant]
     Active Substance: TAMSULOSIN
  10. MYRBETRIQ [Concomitant]
     Active Substance: MIRABEGRON
  11. DICLOFENAC SODIUM [Concomitant]
     Active Substance: DICLOFENAC\DICLOFENAC SODIUM
  12. VELCADE [Concomitant]
     Active Substance: BORTEZOMIB
  13. ACYCLOVIR [Concomitant]
     Active Substance: ACYCLOVIR
  14. ZOLPIDEM [Concomitant]
     Active Substance: ZOLPIDEM TARTRATE
  15. OXYCODONE [Concomitant]
     Active Substance: OXYCODONE\OXYCODONE HYDROCHLORIDE
  16. MEGESTROL [Concomitant]
     Active Substance: MEGESTROL
  17. BENZONATATE [Concomitant]
     Active Substance: BENZONATATE

REACTIONS (2)
  - Fall [Recovering/Resolving]
  - Clavicle fracture [Recovering/Resolving]

NARRATIVE: CASE EVENT DATE: 20231201
